FAERS Safety Report 21031648 (Version 1)
Quarter: 2022Q3

REPORT INFORMATION
  Report Type: Report from Study
  Country: US (occurrence: US)
  Receive Date: 20220701
  Receipt Date: 20220701
  Transmission Date: 20221027
  Serious: No
  Sender: FDA-Public Use
  Company Number: US-NOVARTISTESTPH-NVSC2022US149858

PATIENT
  Age: 57 Year
  Sex: Female

DRUGS (1)
  1. OMNITROPE [Suspect]
     Active Substance: SOMATROPIN
     Indication: Product used for unknown indication
     Dosage: 0.4 MG, QD
     Route: 058
     Dates: start: 20191212

REACTIONS (3)
  - Swelling [Unknown]
  - Photosensitivity reaction [Unknown]
  - Rash [Unknown]

NARRATIVE: CASE EVENT DATE: 20220615
